FAERS Safety Report 10240741 (Version 1)
Quarter: 2014Q2

REPORT INFORMATION
  Report Type: Report from Study
  Country: ES (occurrence: None)
  Receive Date: 20140612
  Receipt Date: 20140612
  Transmission Date: 20141212
  Serious: Yes (Hospitalization)
  Sender: FDA-Public Use
  Company Number: AUR-APL-2014-06221

PATIENT
  Age: 58 Year
  Sex: Female

DRUGS (6)
  1. LOSARTAN [Suspect]
     Indication: HYPERTENSION
     Route: 048
     Dates: start: 201304, end: 20130922
  2. CARDURAN NEO [Suspect]
     Indication: HYPERTENSION
     Route: 048
     Dates: end: 20130922
  3. OMEPRAZOLE (OMEPRAZOLE) [Concomitant]
  4. PARACETAMOL (PARACETAMOL) [Concomitant]
  5. COROPRES (CARVEDILOL) [Concomitant]
  6. RAPAMUNE (SIROLIMUS) [Concomitant]

REACTIONS (2)
  - Renal failure acute [None]
  - Drug interaction [None]
